FAERS Safety Report 24789604 (Version 1)
Quarter: 2024Q4

REPORT INFORMATION
  Report Type: Spontaneous
  Country: US (occurrence: None)
  Receive Date: 20241229
  Receipt Date: 20241229
  Transmission Date: 20250115
  Serious: Yes (Disabling, Other)
  Sender: Public
  Company Number: None

PATIENT
  Age: 53 Year
  Sex: Female
  Weight: 56.7 kg

DRUGS (6)
  1. MONTELUKAST SODIUM [Suspect]
     Active Substance: MONTELUKAST\MONTELUKAST SODIUM
     Indication: Asthma
     Dosage: OTHER QUANTITY : 1 TABLET(S);?FREQUENCY : AT BEDTIME;?
     Route: 048
     Dates: start: 20241127, end: 20241223
  2. WIXELA INHUB [Suspect]
     Active Substance: FLUTICASONE PROPIONATE\SALMETEROL XINAFOATE
  3. BUPROPION [Concomitant]
     Active Substance: BUPROPION
  4. MELOXICAM [Concomitant]
     Active Substance: MELOXICAM
  5. DIM [Concomitant]
  6. VITAMIN B [Concomitant]
     Active Substance: VITAMIN B

REACTIONS (2)
  - Insomnia [None]
  - Agitation [None]

NARRATIVE: CASE EVENT DATE: 20241222
